FAERS Safety Report 8444161-6 (Version None)
Quarter: 2012Q2

REPORT INFORMATION
  Report Type: 
  Country: None (occurrence: None)
  Receive Date: 20120323
  Receipt Date: 20110518
  Transmission Date: 20120825
  Serious: Yes (Other)
  Sender: FDA-Public Use
  Company Number: 163-21880-11052766

PATIENT
  Age: 70 Year
  Sex: Female

DRUGS (9)
  1. REVLIMID [Suspect]
     Indication: MULTIPLE MYELOMA
     Dosage: 25 MG, DAILY X 21, PO
     Route: 048
     Dates: start: 20110407
  2. MULTIVITMINS (MULTIVITAMINS) [Concomitant]
  3. ONDANSETRON [Concomitant]
  4. PRILOSEC [Concomitant]
  5. HYDROCODONE/APAP (PROCET / USA/) [Concomitant]
  6. FLUCONAZOLE [Concomitant]
  7. DEXAMETHASONE [Concomitant]
  8. LORAZEPAM [Concomitant]
  9. ACYCLOVIR [Concomitant]

REACTIONS (1)
  - BLOOD COUNT ABNORMAL [None]
